FAERS Safety Report 16100873 (Version 1)
Quarter: 2019Q1

REPORT INFORMATION
  Report Type: Spontaneous
  Country: US (occurrence: US)
  Receive Date: 20190321
  Receipt Date: 20190321
  Transmission Date: 20190418
  Serious: Yes (Life-Threatening, Hospitalization)
  Sender: FDA-Public Use
  Company Number: US-PERRIGO-19US003250

PATIENT
  Age: 26 Year
  Sex: Male

DRUGS (2)
  1. LOPERAMIDE HYDROCHLORIDE. [Suspect]
     Active Substance: LOPERAMIDE HYDROCHLORIDE
     Indication: DRUG ABUSE
     Dosage: 300 MG, QD
     Route: 048
  2. LOPERAMIDE HYDROCHLORIDE. [Suspect]
     Active Substance: LOPERAMIDE HYDROCHLORIDE
     Dosage: 200 MG, QD
     Route: 048

REACTIONS (5)
  - Syncope [Recovered/Resolved]
  - Torsade de pointes [Recovered/Resolved]
  - Drug abuse [Recovered/Resolved]
  - Cardio-respiratory arrest [Recovered/Resolved]
  - Electrocardiogram QT prolonged [Unknown]
